FAERS Safety Report 16244546 (Version 3)
Quarter: 2019Q2

REPORT INFORMATION
  Report Type: Report from Study
  Country: US (occurrence: US)
  Receive Date: 20190426
  Receipt Date: 20190626
  Transmission Date: 20190711
  Serious: Yes (Hospitalization)
  Sender: FDA-Public Use
  Company Number: PHHO2019US003113

PATIENT
  Age: 59 Year
  Sex: Female
  Weight: 49.43 kg

DRUGS (9)
  1. CARTIA XT [Concomitant]
     Active Substance: DILTIAZEM HYDROCHLORIDE
     Indication: HYPERTENSION
     Dosage: UNK
     Route: 065
  2. BAF312 [Suspect]
     Active Substance: SIPONIMOD
     Dosage: 2 MG, QD
     Route: 048
     Dates: start: 20190330
  3. BACLOFEN. [Concomitant]
     Active Substance: BACLOFEN
     Indication: MUSCLE SPASTICITY
     Dosage: UNK
     Route: 037
  4. VITAMIN D3 [Concomitant]
     Active Substance: CHOLECALCIFEROL
     Indication: PRODUCT USED FOR UNKNOWN INDICATION
     Dosage: 1 DF, QD
     Route: 048
  5. PROLIA [Concomitant]
     Active Substance: DENOSUMAB
     Indication: OSTEOPENIA
     Dosage: 600 MG, TWICE A YEAR
     Route: 065
     Dates: start: 20170406
  6. IBUPROFEN. [Concomitant]
     Active Substance: IBUPROFEN
     Indication: MULTIPLE SCLEROSIS
     Dosage: 200 MG, PRN
     Route: 065
  7. PLACEBO [Suspect]
     Active Substance: UNSPECIFIED INGREDIENT
     Indication: SECONDARY PROGRESSIVE MULTIPLE SCLEROSIS
     Dosage: UNK
     Route: 048
     Dates: start: 20140808, end: 20160328
  8. BAF312 [Suspect]
     Active Substance: SIPONIMOD
     Indication: SECONDARY PROGRESSIVE MULTIPLE SCLEROSIS
     Dosage: 2 MG, QD
     Route: 048
     Dates: start: 20160405, end: 201903
  9. CRANBERRY. [Concomitant]
     Active Substance: CRANBERRY
     Indication: PRODUCT USED FOR UNKNOWN INDICATION
     Dosage: 1 DF, QD
     Route: 048
     Dates: start: 2013

REACTIONS (1)
  - Volvulus [Recovering/Resolving]

NARRATIVE: CASE EVENT DATE: 20190312
